FAERS Safety Report 20956944 (Version 1)
Quarter: 2022Q2

REPORT INFORMATION
  Report Type: Spontaneous
  Country: US (occurrence: US)
  Receive Date: 20220614
  Receipt Date: 20220614
  Transmission Date: 20220720
  Serious: No
  Sender: FDA-Public Use
  Company Number: US-PFM-2021-00219

PATIENT
  Sex: Male
  Weight: 5.778 kg

DRUGS (1)
  1. HEMANGEOL [Suspect]
     Active Substance: PROPRANOLOL HYDROCHLORIDE
     Indication: Infantile haemangioma
     Dosage: 1.7 ML, BID (2/DAY)
     Route: 065
     Dates: start: 202012

REACTIONS (1)
  - Sleep disorder [Unknown]
